FAERS Safety Report 12296439 (Version 1)
Quarter: 2016Q2

REPORT INFORMATION
  Report Type: Spontaneous
  Country: US (occurrence: US)
  Receive Date: 20160422
  Receipt Date: 20160422
  Transmission Date: 20160815
  Serious: No
  Sender: FDA-Public Use
  Company Number: US-SHIRE-US201604877

PATIENT
  Sex: Female
  Weight: 62.59 kg

DRUGS (4)
  1. PENTASA [Suspect]
     Active Substance: MESALAMINE
     Indication: ABDOMINAL PAIN LOWER
     Dosage: 1000 MG (TWO 500 MG CAPSULES), 2X/DAY:BID
     Route: 048
     Dates: start: 20160318
  2. REFRESH                            /06838601/ [Concomitant]
     Indication: DRY EYE
     Dosage: UNK, UNKNOWN
     Route: 065
  3. PENTASA [Suspect]
     Active Substance: MESALAMINE
     Indication: RECTAL HAEMORRHAGE
  4. ARTIFICIAL TEARS                   /00222401/ [Concomitant]
     Indication: DRY EYE
     Dosage: UNK, UNKNOWN
     Route: 065

REACTIONS (3)
  - Eye disorder [Unknown]
  - Product use issue [Unknown]
  - Dry eye [Unknown]

NARRATIVE: CASE EVENT DATE: 2016
